FAERS Safety Report 24021007 (Version 1)
Quarter: 2024Q2

REPORT INFORMATION
  Report Type: Spontaneous
  Country: GB (occurrence: GB)
  Receive Date: 20240627
  Receipt Date: 20240627
  Transmission Date: 20240715
  Serious: Yes (Life-Threatening, Other)
  Sender: FDA-Public Use
  Company Number: GB-CHEPLA-2024006488

PATIENT
  Age: 87 Year

DRUGS (2)
  1. INDAPAMIDE [Suspect]
     Active Substance: INDAPAMIDE
     Indication: Product used for unknown indication
     Dosage: UNTIL LAST WEEK I WAS TAKING INDAPAMIDE DIURETIC PILLS BUT HAVE DISCONTINUED
     Route: 065
  2. COLESEVELAM HYDROCHLORIDE [Suspect]
     Active Substance: COLESEVELAM HYDROCHLORIDE
     Indication: Bile acid malabsorption
     Dosage: 625 MG
     Route: 065
     Dates: start: 2017

REACTIONS (5)
  - Muscular weakness [Unknown]
  - Fall [Unknown]
  - Balance disorder [Unknown]
  - Blood sodium decreased [Recovering/Resolving]
  - Muscle spasms [Unknown]
